FAERS Safety Report 5824003-5 (Version None)
Quarter: 2008Q3

REPORT INFORMATION
  Report Type: 
  Country: None (occurrence: None)
  Receive Date: 20080728
  Receipt Date: 20080716
  Transmission Date: 20090109
  Serious: Yes (Life-Threatening, Hospitalization)
  Sender: FDA-Public Use
  Company Number: US-ELI_LILLY_AND_COMPANY-US200807003371

PATIENT
  Sex: Male
  Weight: 36.281 kg

DRUGS (14)
  1. PEMETREXED [Suspect]
     Indication: NEOPLASM MALIGNANT
     Dosage: 500 MG/M2, OTHER
     Route: 042
     Dates: start: 20080625, end: 20080625
  2. LIPITOR [Concomitant]
     Indication: HYPERLIPIDAEMIA
  3. GLIPIZIDE [Concomitant]
     Indication: DIABETES MELLITUS
  4. AVANDIA [Concomitant]
     Indication: DIABETES MELLITUS
  5. METFORMIN HCL [Concomitant]
     Indication: DIABETES MELLITUS
  6. PREDNISONE TAB [Concomitant]
  7. XANAX [Concomitant]
     Indication: ANXIETY
  8. PAXIL [Concomitant]
     Indication: DEPRESSION
  9. MEGESTROL ACETATE [Concomitant]
     Indication: INCREASED APPETITE
  10. TUSSINOL DAY-TIME COUGH + COLD [Concomitant]
     Indication: COUGH
  11. FOLIC ACID [Concomitant]
     Indication: SUPPLEMENTATION THERAPY
  12. VITAMIN B-12 [Concomitant]
     Indication: SUPPLEMENTATION THERAPY
  13. DECADRON [Concomitant]
     Indication: SUPPLEMENTATION THERAPY
  14. BLOOD CELLS, PACKED HUMAN [Concomitant]
     Indication: ANAEMIA
     Dates: start: 20080708, end: 20080708

REACTIONS (1)
  - SUBARACHNOID HAEMORRHAGE [None]
